FAERS Safety Report 8412383-6 (Version None)
Quarter: 2012Q2

REPORT INFORMATION
  Report Type: 
  Country: None (occurrence: None)
  Receive Date: 20120605
  Receipt Date: 20120518
  Transmission Date: 20120825
  Serious: No
  Sender: FDA-Public Use
  Company Number: US-AMGEN-USASP2012031473

PATIENT
  Age: 53 Year
  Sex: Female

DRUGS (1)
  1. ENBREL [Suspect]
     Indication: PSORIATIC ARTHROPATHY
     Dosage: 50 MG, QWK
     Dates: start: 20031110

REACTIONS (4)
  - OROPHARYNGEAL PAIN [None]
  - PYREXIA [None]
  - SEASONAL ALLERGY [None]
  - PARANASAL SINUS HYPERSECRETION [None]
